FAERS Safety Report 7775704-3 (Version None)
Quarter: 2011Q3

REPORT INFORMATION
  Report Type: 
  Country: None (occurrence: None)
  Receive Date: 20110923
  Receipt Date: 20110916
  Transmission Date: 20111222
  Serious: Yes (Other)
  Sender: FDA-Public Use
  Company Number: FI-GLAXOSMITHKLINE-B0724869A

PATIENT
  Sex: Male

DRUGS (1)
  1. ZOVIRAX [Suspect]
     Indication: PRODUCT USED FOR UNKNOWN INDICATION
     Route: 065

REACTIONS (2)
  - VISUAL IMPAIRMENT [None]
  - PRODUCT QUALITY ISSUE [None]
